FAERS Safety Report 19114334 (Version 1)
Quarter: 2021Q2

REPORT INFORMATION
  Report Type: Spontaneous
  Country: US (occurrence: US)
  Receive Date: 20210408
  Receipt Date: 20210408
  Transmission Date: 20210717
  Serious: Yes (Hospitalization)
  Sender: FDA-Public Use
  Company Number: US-LUNDBECK-DKLU3031187

PATIENT
  Age: 46 Year
  Sex: Female

DRUGS (4)
  1. WELLBUTRIN XL ER 24H [Concomitant]
     Indication: PRODUCT USED FOR UNKNOWN INDICATION
     Route: 065
  2. ISOSORBIDE. [Suspect]
     Active Substance: ISOSORBIDE
     Indication: ANGINA PECTORIS
     Route: 065
  3. NORTHERA [Suspect]
     Active Substance: DROXIDOPA
     Indication: ORTHOSTATIC HYPOTENSION
     Route: 048
  4. VITAMIN D2 [Concomitant]
     Active Substance: ERGOCALCIFEROL
     Indication: PRODUCT USED FOR UNKNOWN INDICATION
     Route: 065

REACTIONS (8)
  - Heart rate decreased [Recovering/Resolving]
  - Blood pressure increased [Recovering/Resolving]
  - Chest pain [Unknown]
  - Headache [Recovering/Resolving]
  - Drug interaction [Unknown]
  - Dehydration [Unknown]
  - Vision blurred [Recovering/Resolving]
  - Fatigue [Unknown]
